FAERS Safety Report 6626310-5 (Version None)
Quarter: 2010Q1

REPORT INFORMATION
  Report Type: 
  Country: None (occurrence: None)
  Receive Date: 20100309
  Receipt Date: 20100309
  Transmission Date: 20100710
  Serious: Yes (Death)
  Sender: FDA-Public Use
  Company Number: None

PATIENT
  Age: 52 Year
  Sex: Male
  Weight: 92.9874 kg

DRUGS (1)
  1. AVANDIA [Suspect]

REACTIONS (3)
  - BLINDNESS [None]
  - MALAISE [None]
  - MYOCARDIAL INFARCTION [None]
